FAERS Safety Report 9106471 (Version 1)
Quarter: 2013Q1

REPORT INFORMATION
  Report Type: Spontaneous
  Country: US (occurrence: US)
  Receive Date: 20130221
  Receipt Date: 20130221
  Transmission Date: 20140127
  Serious: Yes (Death)
  Sender: FDA-Public Use
  Company Number: PHEH2013US004194

PATIENT
  Age: 81 Year
  Sex: Male

DRUGS (9)
  1. GLEEVEC [Suspect]
     Indication: LYMPHOCYTIC LEUKAEMIA
     Dosage: 400 MG DAILY
     Route: 048
     Dates: start: 20120828
  2. EMEND [Concomitant]
     Dosage: UNK UKN, UNK
  3. DIFLUCAN [Concomitant]
     Dosage: UNK UKN, UNK
  4. PREDNISONE [Concomitant]
     Dosage: UNK UKN, UNK
  5. MAALOX [Concomitant]
     Dosage: UNK UKN, UNK
  6. ACYCLOVIR [Concomitant]
     Dosage: UNK UKN, UNK
  7. CIPROFLOXACIN [Concomitant]
     Dosage: UNK UKN, UNK
  8. ETOPOSIDE [Concomitant]
     Dosage: UNK UKN, UNK
  9. BACTRIM [Concomitant]
     Dosage: UNK UKN, UNK

REACTIONS (1)
  - Death [Fatal]
